FAERS Safety Report 25395361 (Version 1)
Quarter: 2025Q2

REPORT INFORMATION
  Report Type: Spontaneous
  Country: CN (occurrence: CN)
  Receive Date: 20250604
  Receipt Date: 20250604
  Transmission Date: 20250716
  Serious: Yes (Hospitalization)
  Sender: PFIZER
  Company Number: CN-PFIZER INC-PV202500065006

PATIENT
  Age: 91 Year
  Sex: Male
  Weight: 55 kg

DRUGS (2)
  1. LINEZOLID [Suspect]
     Active Substance: LINEZOLID
     Indication: Infection
     Dosage: 300 ML, 2X/DAY
     Route: 041
     Dates: start: 20250520, end: 20250520
  2. LINEZOLID [Suspect]
     Active Substance: LINEZOLID
     Dosage: 400 MG, 2X/DAY
     Route: 041
     Dates: start: 20250521, end: 20250523

REACTIONS (2)
  - Platelet count decreased [Recovering/Resolving]
  - Drug level increased [Recovering/Resolving]

NARRATIVE: CASE EVENT DATE: 20250501
